FAERS Safety Report 4654749-6 (Version None)
Quarter: 2005Q2

REPORT INFORMATION
  Report Type: 
  Country: None (occurrence: None)
  Receive Date: 20050505
  Receipt Date: 20050505
  Transmission Date: 20051028
  Serious: Yes (Hospitalization)
  Sender: FDA-Public Use
  Company Number: None

PATIENT
  Sex: Male
  Weight: 79.1 kg

DRUGS (2)
  1. DOCETAXEL [Suspect]
     Indication: HEPATIC NEOPLASM MALIGNANT
     Dosage: 30MG/M2  (58 MG IV WKLY)
     Route: 042
     Dates: start: 20050202
  2. DOCERCALCIFEROL [Suspect]
     Dosage: 10 MCG 3X/ WK

REACTIONS (3)
  - DEEP VEIN THROMBOSIS [None]
  - HYPERCOAGULATION [None]
  - PULMONARY EMBOLISM [None]
